FAERS Safety Report 8002604-6 (Version None)
Quarter: 2011Q4

REPORT INFORMATION
  Report Type: 
  Country: None (occurrence: None)
  Receive Date: 20111222
  Receipt Date: 20111122
  Transmission Date: 20120403
  Serious: Yes (Hospitalization)
  Sender: FDA-Public Use
  Company Number: US-GLAXOSMITHKLINE-A0955900A

PATIENT
  Age: 58 Year
  Sex: Female

DRUGS (2)
  1. REVATIO [Concomitant]
     Dosage: 20MG THREE TIMES PER DAY
  2. FLOLAN [Suspect]
     Indication: COR PULMONALE CHRONIC
     Dosage: 19.5NGKM UNKNOWN
     Route: 065
     Dates: start: 20110328

REACTIONS (1)
  - FURUNCLE [None]
